FAERS Safety Report 15499260 (Version 1)
Quarter: 2018Q4

REPORT INFORMATION
  Report Type: Spontaneous
  Country: US (occurrence: US)
  Receive Date: 20181014
  Receipt Date: 20181014
  Transmission Date: 20190205
  Serious: Yes (Death)
  Sender: FDA-Public Use
  Company Number: None

PATIENT
  Sex: Female
  Weight: 99.79 kg

DRUGS (1)
  1. CONTRAST DYE [Suspect]
     Active Substance: UNSPECIFIED INGREDIENT

REACTIONS (7)
  - Pulse abnormal [None]
  - Contrast media allergy [None]
  - Myocardial infarction [None]
  - Cardiogenic shock [None]
  - Acute kidney injury [None]
  - Vomiting [None]
  - Heart rate abnormal [None]
